FAERS Safety Report 10258304 (Version 1)
Quarter: 2014Q2

REPORT INFORMATION
  Report Type: Spontaneous
  Country: US (occurrence: None)
  Receive Date: 20140623
  Receipt Date: 20140623
  Transmission Date: 20141212
  Serious: Yes (Other)
  Sender: FDA-Public Use
  Company Number: None

PATIENT
  Age: 49 Year
  Sex: Male
  Weight: 63.5 kg

DRUGS (7)
  1. FORTESTA [Suspect]
     Indication: HYPOGONADISM
     Dosage: 5 PUMPS
     Route: 062
     Dates: start: 20130424, end: 20140506
  2. SIMVASTATIN [Concomitant]
  3. GEMFIBROZIL [Concomitant]
  4. ETODOLAC [Concomitant]
  5. ESOMEPRAZOLE [Concomitant]
  6. METHOCARBAMOL [Concomitant]
  7. TRAMADOL [Concomitant]

REACTIONS (1)
  - Haematocrit increased [None]
